FAERS Safety Report 8328390-8 (Version None)
Quarter: 2012Q2

REPORT INFORMATION
  Report Type: 
  Country: None (occurrence: None)
  Receive Date: 20120502
  Receipt Date: 20120423
  Transmission Date: 20120825
  Serious: Yes (Hospitalization, Other)
  Sender: FDA-Public Use
  Company Number: US-BAYER-2011-115702

PATIENT
  Age: 36 Year
  Sex: Female
  Weight: 63.492 kg

DRUGS (1)
  1. YASMIN [Suspect]
     Indication: CONTRACEPTION
     Dosage: UNK
     Route: 048
     Dates: start: 20070101, end: 20090101

REACTIONS (7)
  - GALLBLADDER DISORDER [None]
  - PAIN [None]
  - DYSPEPSIA [None]
  - GENERAL PHYSICAL HEALTH DETERIORATION [None]
  - EMOTIONAL DISTRESS [None]
  - CHOLECYSTITIS [None]
  - ANXIETY [None]
